FAERS Safety Report 23197551 (Version 2)
Quarter: 2023Q4

REPORT INFORMATION
  Report Type: Spontaneous
  Country: US (occurrence: US)
  Receive Date: 20231117
  Receipt Date: 20231201
  Transmission Date: 20240110
  Serious: Yes (Life-Threatening, Hospitalization, Other)
  Sender: FDA-Public Use
  Company Number: US-GLENMARK PHARMACEUTICALS-2023GMK086472

PATIENT

DRUGS (8)
  1. LACOSAMIDE [Suspect]
     Active Substance: LACOSAMIDE
     Indication: Neonatal seizure
     Dosage: 2 MILLIGRAM/KILOGRAM (2 MG/KG/DOSE)
     Route: 065
  2. PHENOBARBITAL [Concomitant]
     Active Substance: PHENOBARBITAL
     Indication: Neonatal seizure
     Dosage: 6 MILLIGRAM/KILOGRAM, QD (6 MG/KG/DAY DIVIDED TWICE DAILY)
     Route: 042
  3. LEVETIRACETAM [Concomitant]
     Active Substance: LEVETIRACETAM
     Indication: Neonatal seizure
     Dosage: 100 MILLIGRAM/KILOGRAM, QD (100 MG/KG/DAY DIVIDED TWICE DAILY)
     Route: 042
  4. LEVETIRACETAM [Concomitant]
     Active Substance: LEVETIRACETAM
     Dosage: 60 MILLIGRAM/KILOGRAM, QD (100 MG/KG/DAY DIVIDED TWICE DAILY)
     Route: 042
  5. PHENYTOIN [Concomitant]
     Active Substance: PHENYTOIN
     Indication: Neonatal seizure
     Dosage: 2 MILLIGRAM/KILOGRAM, BID
     Route: 042
  6. PHENYTOIN [Concomitant]
     Active Substance: PHENYTOIN
     Dosage: 3 MILLIGRAM/KILOGRAM, BID
     Route: 042
  7. FOSPHENYTOIN [Concomitant]
     Active Substance: FOSPHENYTOIN
     Indication: Neonatal seizure
     Dosage: 6 MILLIGRAM/KILOGRAM, QD (6 MG/KG DIVIDED TWICE DAILY)
     Route: 042
  8. DOBUTAMINE [Concomitant]
     Active Substance: DOBUTAMINE HYDROCHLORIDE
     Indication: Neonatal seizure
     Dosage: UNK
     Route: 065

REACTIONS (2)
  - Cardiac arrest neonatal [Recovered/Resolved]
  - Atrioventricular block second degree [Recovered/Resolved]
